FAERS Safety Report 9595895 (Version 1)
Quarter: 2013Q4

REPORT INFORMATION
  Report Type: Spontaneous
  Country: US (occurrence: US)
  Receive Date: 20131004
  Receipt Date: 20131004
  Transmission Date: 20140711
  Serious: No
  Sender: FDA-Public Use
  Company Number: US-PURDUE-USA-2012-0092974

PATIENT
  Sex: Female

DRUGS (4)
  1. BUTRANS [Suspect]
     Indication: NECK PAIN
     Dosage: 10 MCG, UNK
     Route: 062
     Dates: start: 20120829, end: 20120903
  2. BUTRANS [Suspect]
     Indication: ARTHRALGIA
  3. BUTRANS [Suspect]
     Indication: PAIN IN EXTREMITY
  4. BUTRANS [Suspect]
     Indication: MIGRAINE

REACTIONS (6)
  - Application site pain [Unknown]
  - Application site rash [Not Recovered/Not Resolved]
  - Inadequate analgesia [Unknown]
  - Pruritus [Recovered/Resolved]
  - Product adhesion issue [Unknown]
  - Rash generalised [Not Recovered/Not Resolved]
